FAERS Safety Report 11926789 (Version 1)
Quarter: 2016Q1

REPORT INFORMATION
  Report Type: Spontaneous
  Country: NZ (occurrence: NZ)
  Receive Date: 20160119
  Receipt Date: 20160119
  Transmission Date: 20160526
  Serious: Yes (Other)
  Sender: FDA-Public Use
  Company Number: NZ-PFIZER INC-2016015340

PATIENT
  Age: 56 Year
  Sex: Male

DRUGS (1)
  1. SUNITINIB MALATE. [Suspect]
     Active Substance: SUNITINIB MALATE
     Indication: METASTATIC RENAL CELL CARCINOMA
     Dosage: UNK
     Dates: start: 200906, end: 201506

REACTIONS (5)
  - Metastatic renal cell carcinoma [Unknown]
  - Impaired healing [Unknown]
  - Cauda equina syndrome [Unknown]
  - Disease progression [Unknown]
  - Infection [Unknown]

NARRATIVE: CASE EVENT DATE: 201504
